FAERS Safety Report 5835613-3 (Version None)
Quarter: 2008Q3

REPORT INFORMATION
  Report Type: 
  Country: None (occurrence: None)
  Receive Date: 20080806
  Receipt Date: 20080801
  Transmission Date: 20090109
  Serious: Yes (Death, Hospitalization, Disabling, Other)
  Sender: FDA-Public Use
  Company Number: PHHO2001IT05640

PATIENT
  Sex: Male
  Weight: 88 kg

DRUGS (7)
  1. RAD 666 RAD+ [Suspect]
     Indication: LUNG TRANSPLANT
     Dosage: 1.5 MG, BID
     Route: 048
     Dates: start: 19990422, end: 20010710
  2. NEORAL [Suspect]
     Indication: LUNG TRANSPLANT
     Dosage: 125 MG, BID
     Route: 048
     Dates: start: 19991203
  3. NEORAL [Suspect]
     Dosage: 200 MG / DAY
     Route: 048
  4. SOLU-MEDROL [Suspect]
     Indication: TRANSPLANT REJECTION
     Dosage: 1 G, QD
     Route: 048
     Dates: start: 20010613, end: 20010615
  5. DELTACORTENE [Suspect]
     Indication: TRANSPLANT REJECTION
     Dosage: 50 MG, QD
     Route: 048
     Dates: start: 20010616, end: 20010619
  6. DELTACORTENE [Suspect]
     Dosage: 25 MG, QD
     Route: 048
     Dates: start: 20010620, end: 20010625
  7. DELTACORTENE [Suspect]
     Dosage: 5 MG, QD
     Route: 048
     Dates: start: 20010626

REACTIONS (8)
  - FLUID RETENTION [None]
  - METASTASES TO BONE [None]
  - METASTASES TO LIVER [None]
  - PLEURAL EFFUSION [None]
  - PULMONARY OEDEMA [None]
  - RENAL FAILURE CHRONIC [None]
  - SMALL CELL LUNG CANCER STAGE UNSPECIFIED [None]
  - URINARY RETENTION [None]
